FAERS Safety Report 17299343 (Version 1)
Quarter: 2020Q1

REPORT INFORMATION
  Report Type: Spontaneous
  Country: BR (occurrence: BR)
  Receive Date: 20200121
  Receipt Date: 20200121
  Transmission Date: 20200409
  Serious: Yes (Other)
  Sender: FDA-Public Use
  Company Number: NVSC2020BR012677

PATIENT
  Age: 57 Year
  Sex: Female

DRUGS (2)
  1. DUOTRAV BAC-FREE [Suspect]
     Active Substance: TIMOLOL\TRAVOPROST
     Indication: PRODUCT USED FOR UNKNOWN INDICATION
     Route: 065
  2. TIMOLOL MALEATE. [Suspect]
     Active Substance: TIMOLOL MALEATE
     Indication: PRODUCT USED FOR UNKNOWN INDICATION
     Route: 065

REACTIONS (5)
  - Eye pruritus [Unknown]
  - Asphyxia [Unknown]
  - Eye irritation [Unknown]
  - Cough [Unknown]
  - Eye swelling [Unknown]

NARRATIVE: CASE EVENT DATE: 201910
